FAERS Safety Report 15603166 (Version 2)
Quarter: 2018Q4

REPORT INFORMATION
  Report Type: Spontaneous
  Country: CA (occurrence: CA)
  Receive Date: 20181109
  Receipt Date: 20181210
  Transmission Date: 20190205
  Serious: Yes (Hospitalization, Other)
  Sender: FDA-Public Use
  Company Number: CA-PFIZER INC-2018457593

PATIENT
  Sex: Male

DRUGS (12)
  1. ACTEMRA [Suspect]
     Active Substance: TOCILIZUMAB
     Dosage: 800 MG, EVERY MONTH
     Route: 042
  2. REMICADE [Suspect]
     Active Substance: INFLIXIMAB
     Dosage: 5 UG/KG, UNK
     Route: 042
  3. RITUXAN [Suspect]
     Active Substance: RITUXIMAB
     Dosage: 1000 MG, EVERY 15 DAYS
     Route: 042
  4. RITUXAN [Suspect]
     Active Substance: RITUXIMAB
     Dosage: 1000 MG, EVERY 15 DAYS
     Route: 042
  5. RITUXAN [Suspect]
     Active Substance: RITUXIMAB
     Dosage: 1000 MG, EVERY 15 DAYS
     Route: 042
  6. PLAQUENIL [Suspect]
     Active Substance: HYDROXYCHLOROQUINE SULFATE
     Dosage: 400 MG, ONCE DAILY
  7. RITUXAN [Suspect]
     Active Substance: RITUXIMAB
     Dosage: 1000 MG, EVERY 15 DAYS
     Route: 042
  8. METHOTREXATE SODIUM. [Suspect]
     Active Substance: METHOTREXATE SODIUM
     Dosage: 25 MG, WEEKLY
     Route: 058
  9. DESOXIMETASONE. [Concomitant]
     Active Substance: DESOXIMETASONE
     Dosage: UNK
  10. SULFASALAZINE. [Suspect]
     Active Substance: SULFASALAZINE
     Dosage: 500 MG, TWICE DAILY
  11. HUMIRA [Suspect]
     Active Substance: ADALIMUMAB
     Dosage: 40 MG, EVERY 2 WEEKS
     Route: 058
  12. METHOTREXATE SODIUM. [Suspect]
     Active Substance: METHOTREXATE SODIUM
     Dosage: 25 MG, WEEKLY
     Route: 058

REACTIONS (8)
  - Arthritis bacterial [Not Recovered/Not Resolved]
  - Balance disorder [Not Recovered/Not Resolved]
  - Abscess [Not Recovered/Not Resolved]
  - Bladder transitional cell carcinoma [Not Recovered/Not Resolved]
  - Drug ineffective [Not Recovered/Not Resolved]
  - Nausea [Not Recovered/Not Resolved]
  - Type 2 diabetes mellitus [Not Recovered/Not Resolved]
  - Tachycardia [Not Recovered/Not Resolved]
